FAERS Safety Report 20777734 (Version 1)
Quarter: 2022Q2

REPORT INFORMATION
  Report Type: Spontaneous
  Country: ES (occurrence: None)
  Receive Date: 20220503
  Receipt Date: 20220503
  Transmission Date: 20220721
  Serious: Yes (Other)
  Sender: FDA-Public Use
  Company Number: ES-MICRO LABS LIMITED-ML2022-01844

PATIENT
  Age: 3 Year
  Sex: Female

DRUGS (3)
  1. CLOBAZAM [Suspect]
     Active Substance: CLOBAZAM
     Indication: Epileptic encephalopathy
  2. VALPROIC ACID [Suspect]
     Active Substance: VALPROIC ACID
     Indication: Epileptic encephalopathy
  3. BRIVARACETAM [Suspect]
     Active Substance: BRIVARACETAM
     Indication: Epileptic encephalopathy

REACTIONS (3)
  - Fanconi syndrome [Unknown]
  - Femur fracture [Unknown]
  - Spinal fracture [Unknown]
